FAERS Safety Report 10346804 (Version 1)
Quarter: 2014Q3

REPORT INFORMATION
  Report Type: Spontaneous
  Country: US (occurrence: US)
  Receive Date: 20140729
  Receipt Date: 20140729
  Transmission Date: 20150326
  Serious: No
  Sender: FDA-Public Use
  Company Number: US-009507513-1407USA006896

PATIENT
  Age: 72 Year
  Sex: Female

DRUGS (1)
  1. DULERA [Suspect]
     Active Substance: FORMOTEROL FUMARATE DIHYDRATE\MOMETASONE FUROATE
     Indication: SINUSITIS
     Dosage: 2 PUFFS TWICE DAILY
     Route: 048
     Dates: start: 20140707

REACTIONS (2)
  - Drug administration error [Unknown]
  - Pain [Unknown]

NARRATIVE: CASE EVENT DATE: 20140707
